FAERS Safety Report 25620243 (Version 1)
Quarter: 2025Q3

REPORT INFORMATION
  Report Type: Other
  Country: BR (occurrence: BR)
  Receive Date: 20250730
  Receipt Date: 20250730
  Transmission Date: 20251020
  Serious: Yes (Death, Hospitalization, Other)
  Sender: BIONPHARMA INC.
  Company Number: BR-Bion-015152

PATIENT
  Age: 49 Year
  Sex: Female

DRUGS (1)
  1. VALPROIC ACID [Suspect]
     Active Substance: VALPROIC ACID
     Indication: Suicide attempt

REACTIONS (8)
  - Toxicity to various agents [Fatal]
  - Hyperthermia [Fatal]
  - Hypotension [Fatal]
  - Acute kidney injury [Fatal]
  - Hepatic function abnormal [Fatal]
  - Metabolic acidosis [Fatal]
  - Coma [Fatal]
  - Intentional overdose [Fatal]
